FAERS Safety Report 4967464-6 (Version None)
Quarter: 2006Q2

REPORT INFORMATION
  Report Type: 
  Country: None (occurrence: None)
  Receive Date: 20060407
  Receipt Date: 20060407
  Transmission Date: 20061013
  Serious: Yes (Other)
  Sender: FDA-Public Use
  Company Number: None

PATIENT
  Sex: Female
  Weight: 64.4108 kg

DRUGS (4)
  1. ELOXATIN [Suspect]
     Indication: COLON CANCER
     Dosage: 120MG  Q2 WKS   IV DRIP
     Route: 041
     Dates: start: 20051115, end: 20060405
  2. ELOXATIN [Suspect]
  3. LEUCOVORIN     50MG AND 200MG    BEDFORD [Suspect]
     Indication: COLON CANCER
     Dosage: 288MG  Q 2WKS   IV DRIP
     Route: 041
     Dates: start: 20051115, end: 20060405
  4. LEUCOVORIN    50MG AND 200MG    BEDFORD [Suspect]

REACTIONS (7)
  - BLOOD PRESSURE INCREASED [None]
  - ERYTHEMA [None]
  - FEELING HOT [None]
  - INFUSION RELATED REACTION [None]
  - RASH MACULAR [None]
  - RESPIRATORY RATE INCREASED [None]
  - THROAT TIGHTNESS [None]
